FAERS Safety Report 5016289-4 (Version None)
Quarter: 2006Q2

REPORT INFORMATION
  Report Type: 
  Country: None (occurrence: None)
  Receive Date: 20060421
  Receipt Date: 20060215
  Transmission Date: 20061013
  Serious: Yes (Other)
  Sender: FDA-Public Use
  Company Number: US-JNJFOC-20060203624

PATIENT
  Age: 68 Year
  Sex: Male

DRUGS (7)
  1. VIADUR [Suspect]
     Indication: PROSTATE CANCER
     Dosage: 120 UG, 1 IN 1 DAY; SUBCUTANEOUS; 120 UG, 1 IN 1 DAY; SUBCUTANEOUS
     Route: 058
     Dates: start: 20041210, end: 20051201
  2. VIADUR [Suspect]
     Indication: PROSTATE CANCER
     Dosage: 120 UG, 1 IN 1 DAY; SUBCUTANEOUS; 120 UG, 1 IN 1 DAY; SUBCUTANEOUS
     Route: 058
     Dates: start: 20051220
  3. LISINOPRIL [Concomitant]
  4. ATENELOL [Concomitant]
  5. HYDROCHLOROTHIAZIDE [Concomitant]
  6. ... [Concomitant]
  7. ... [Concomitant]

REACTIONS (2)
  - BLOOD CHOLESTEROL INCREASED [None]
  - HYPERTENSION [None]
